FAERS Safety Report 8151550-6 (Version None)
Quarter: 2012Q1

REPORT INFORMATION
  Report Type: 
  Country: None (occurrence: None)
  Receive Date: 20120220
  Receipt Date: 20111109
  Transmission Date: 20120608
  Serious: Yes (Other)
  Sender: FDA-Public Use
  Company Number: JP-ROCHE-1041216

PATIENT
  Sex: Male

DRUGS (8)
  1. RANIBIZUMAB [Suspect]
     Route: 050
     Dates: start: 20110228
  2. VISUDYNE [Concomitant]
     Dates: start: 20090401, end: 20090401
  3. RANIBIZUMAB [Suspect]
     Route: 050
     Dates: start: 20091019
  4. RANIBIZUMAB [Suspect]
     Route: 050
     Dates: start: 20110425
  5. LEVOFLOXACIN [Concomitant]
     Dates: start: 20090801, end: 20091001
  6. RANIBIZUMAB [Suspect]
     Route: 050
     Dates: start: 20110328
  7. RANIBIZUMAB [Suspect]
     Indication: AGE-RELATED MACULAR DEGENERATION
     Route: 050
     Dates: start: 20090817
  8. RANIBIZUMAB [Suspect]
     Route: 050
     Dates: start: 20090914

REACTIONS (4)
  - DETACHMENT OF RETINAL PIGMENT EPITHELIUM [None]
  - RETINAL HAEMORRHAGE [None]
  - CHOROIDAL NEOVASCULARISATION [None]
  - RETINAL DETACHMENT [None]
